FAERS Safety Report 18676731 (Version 2)
Quarter: 2021Q1

REPORT INFORMATION
  Report Type: Spontaneous
  Country: US (occurrence: US)
  Receive Date: 20201229
  Receipt Date: 20210127
  Transmission Date: 20210419
  Serious: No
  Sender: FDA-Public Use
  Company Number: US-CELGENEUS-USA-20201206229

PATIENT
  Sex: Female
  Weight: 50.53 kg

DRUGS (2)
  1. REVLIMID [Suspect]
     Active Substance: LENALIDOMIDE
     Indication: PLASMA CELL MYELOMA
     Dosage: 25 MILLIGRAM
     Route: 048
     Dates: start: 202009
  2. REVLIMID [Suspect]
     Active Substance: LENALIDOMIDE
     Dosage: 20 MILLIGRAM
     Route: 048
     Dates: start: 202012

REACTIONS (10)
  - Pruritus [Not Recovered/Not Resolved]
  - Weight decreased [Not Recovered/Not Resolved]
  - Compression fracture [Not Recovered/Not Resolved]
  - Kyphosis [Not Recovered/Not Resolved]
  - Skin burning sensation [Recovered/Resolved]
  - Laboratory test abnormal [Not Recovered/Not Resolved]
  - Product dose omission issue [Unknown]
  - Bone lesion [Not Recovered/Not Resolved]
  - Gait inability [Not Recovered/Not Resolved]
  - Product physical issue [Unknown]

NARRATIVE: CASE EVENT DATE: 2020
